FAERS Safety Report 7957403-8 (Version None)
Quarter: 2011Q4

REPORT INFORMATION
  Report Type: 
  Country: None (occurrence: None)
  Receive Date: 20111205
  Receipt Date: 20111130
  Transmission Date: 20120403
  Serious: Yes (Hospitalization, Other)
  Sender: FDA-Public Use
  Company Number: US-MERCK-1109USA03243

PATIENT
  Age: 67 Year
  Sex: Female

DRUGS (9)
  1. ATORVASTATIN CALCIUM [Concomitant]
     Indication: BLOOD CHOLESTEROL INCREASED
     Route: 065
     Dates: start: 20000101
  2. NAPROX [Concomitant]
     Indication: HYPERTENSION
     Route: 065
     Dates: start: 20000101
  3. VITAMINS (UNSPECIFIED) [Concomitant]
     Route: 065
     Dates: start: 20060101
  4. FOSAMAX [Suspect]
     Indication: OSTEOPOROSIS
     Route: 048
     Dates: start: 20040101, end: 20080101
  5. ASPIRIN [Concomitant]
     Indication: ARTHRITIS
     Route: 065
     Dates: start: 20000101
  6. TENORMIN [Concomitant]
     Indication: HYPERTENSION
     Route: 065
     Dates: start: 20010101
  7. OMEPRAZOLE [Concomitant]
     Route: 065
     Dates: start: 20060101
  8. DIOVAN [Concomitant]
     Indication: HYPERTENSION
     Route: 065
     Dates: start: 20010101
  9. FOSAMAX PLUS D [Suspect]
     Indication: OSTEOPOROSIS
     Route: 048
     Dates: start: 20060401, end: 20091001

REACTIONS (5)
  - FEMUR FRACTURE [None]
  - BACK INJURY [None]
  - TOOTH DISORDER [None]
  - UNEVALUABLE EVENT [None]
  - DEVICE FAILURE [None]
